FAERS Safety Report 7186452-5 (Version None)
Quarter: 2010Q4

REPORT INFORMATION
  Report Type: 
  Country: None (occurrence: None)
  Receive Date: 20101222
  Receipt Date: 20101215
  Transmission Date: 20110411
  Serious: Yes (Hospitalization)
  Sender: FDA-Public Use
  Company Number: A0901060A

PATIENT
  Age: 70 Year
  Sex: Male

DRUGS (1)
  1. NIQUITIN [Suspect]
     Indication: SMOKING CESSATION THERAPY
     Dosage: 7MG PER DAY
     Route: 062
     Dates: start: 20101208, end: 20101215

REACTIONS (1)
  - FEMUR FRACTURE [None]
